FAERS Safety Report 10028260 (Version 1)
Quarter: 2014Q1

REPORT INFORMATION
  Report Type: Spontaneous
  Country: US (occurrence: None)
  Receive Date: 20140307
  Receipt Date: 20140307
  Transmission Date: 20141002
  Serious: Yes (Hospitalization, Other)
  Sender: FDA-Public Use
  Company Number: 2014-US-002549

PATIENT
  Age: 26 Year
  Sex: Female

DRUGS (1)
  1. XYREM [Suspect]
     Indication: NARCOLEPSY
     Route: 048
     Dates: start: 201002

REACTIONS (10)
  - Pneumomediastinum [None]
  - Pneumothorax [None]
  - Accidental overdose [None]
  - Hypopnoea [None]
  - Hyperhidrosis [None]
  - Disorientation [None]
  - Wrong technique in drug usage process [None]
  - Palatal oedema [None]
  - Rhinorrhoea [None]
  - Somnambulism [None]
